FAERS Safety Report 8851190 (Version 1)
Quarter: 2012Q4

REPORT INFORMATION
  Report Type: 
  Country: US (occurrence: US)
  Receive Date: 20121019
  Receipt Date: 20121019
  Transmission Date: 20130627
  Serious: Yes (Hospitalization, Other)
  Sender: FDA-Public Use
  Company Number: US-BRISTOL-MYERS SQUIBB COMPANY-16988040

PATIENT
  Sex: Female

DRUGS (2)
  1. YERVOY [Suspect]
     Dosage: Doses:3
  2. VEMURAFENIB [Suspect]

REACTIONS (2)
  - Colitis [Recovered/Resolved]
  - Hepatotoxicity [Recovered/Resolved]
